FAERS Safety Report 5590406-X (Version None)
Quarter: 2008Q1

REPORT INFORMATION
  Report Type: 
  Country: None (occurrence: None)
  Receive Date: 20080109
  Receipt Date: 20071228
  Transmission Date: 20080703
  Serious: Yes (Hospitalization)
  Sender: FDA-Public Use
  Company Number: GXKR2007US11019

PATIENT
  Age: 77 Year
  Sex: Male

DRUGS (2)
  1. BISOPROLOL+HYDROCHLOROTHIAZIDE [Suspect]
     Indication: HYPERTENSION
  2. HYDROCHLOROTHIAZIDE [Concomitant]

REACTIONS (12)
  - ACANTHOSIS [None]
  - BLISTER [None]
  - CONJUNCTIVITIS [None]
  - DERMATITIS PSORIASIFORM [None]
  - HYPERKERATOSIS [None]
  - PARAKERATOSIS [None]
  - PEMPHIGUS [None]
  - PYODERMA [None]
  - SCAB [None]
  - SKIN EXFOLIATION [None]
  - SKIN LESION [None]
  - STAPHYLOCOCCAL BACTERAEMIA [None]
